FAERS Safety Report 7592174-9 (Version None)
Quarter: 2011Q3

REPORT INFORMATION
  Report Type: 
  Country: None (occurrence: None)
  Receive Date: 20110706
  Receipt Date: 20110627
  Transmission Date: 20111222
  Serious: Yes (Hospitalization)
  Sender: FDA-Public Use
  Company Number: JP-SANOFI-AVENTIS-2011SA039259

PATIENT
  Age: 86 Year
  Sex: Male
  Weight: 50.1 kg

DRUGS (10)
  1. DAIKENTYUTO [Concomitant]
     Indication: CONSTIPATION
     Route: 065
     Dates: start: 20080118
  2. MAGNESIUM OXIDE [Concomitant]
     Indication: CONSTIPATION
     Route: 048
     Dates: start: 20100726
  3. ZOLPIDEM [Suspect]
     Indication: INSOMNIA
     Route: 048
     Dates: start: 20080101
  4. INVESTIGATIONAL DRUG [Suspect]
     Indication: PROSTATE CANCER
     Route: 058
     Dates: start: 20101222, end: 20101222
  5. LENDORMIN [Suspect]
     Indication: INSOMNIA
     Route: 048
     Dates: start: 20080101
  6. PRAVASTATIN SODIUM [Concomitant]
     Route: 048
     Dates: start: 20100726
  7. RHYTHMY [Suspect]
     Indication: INSOMNIA
     Route: 048
     Dates: start: 20080101
  8. GASMOTIN [Concomitant]
     Indication: CONSTIPATION
     Route: 048
     Dates: start: 20100628
  9. INVESTIGATIONAL DRUG [Suspect]
     Dosage: CYCLIC.
     Route: 058
     Dates: start: 20110119, end: 20110413
  10. LANSOPRAZOLE [Concomitant]
     Indication: GASTROOESOPHAGEAL REFLUX DISEASE
     Route: 048
     Dates: start: 20101220

REACTIONS (1)
  - OCCULT BLOOD POSITIVE [None]
